FAERS Safety Report 21648245 (Version 24)
Quarter: 2023Q4

REPORT INFORMATION
  Report Type: Report from Study
  Country: BR (occurrence: None)
  Receive Date: 20221128
  Receipt Date: 20231128
  Transmission Date: 20240109
  Serious: Yes (Death, Life-Threatening, Hospitalization)
  Sender: FDA-Public Use
  Company Number: BR-ROCHE-3224045

PATIENT
  Age: 60 Year
  Sex: Male
  Weight: 70.5 kg

DRUGS (47)
  1. RITUXIMAB [Suspect]
     Active Substance: RITUXIMAB
     Indication: B-cell lymphoma
     Dosage: ON 18/NOV/2022, HE RECEIVED MOST RECENT DOSE 700.5 MG OF STUDY DRUG RITUXIMAB PRIOR TO SAE/AE.
     Route: 041
     Dates: start: 20221025
  2. GEMCITABINE [Suspect]
     Active Substance: GEMCITABINE
     Indication: B-cell lymphoma
     Dosage: ON 18/NOV/2022, HE RECEIVED MOST RECENT DOSE 1868 MG OF STUDY DRUG GEMCITABINE PRIOR TO SAE/AE.
     Route: 042
     Dates: start: 20221025
  3. OXALIPLATIN [Suspect]
     Active Substance: OXALIPLATIN
     Indication: B-cell lymphoma
     Dosage: ON 18/NOV/2022, HE RECEIVED MOST RECENT DOSE 186.8 MG OF STUDY DRUG OXALIPLATIN PRIOR TO SAE/AE.
     Route: 042
  4. LOSARTAN [Concomitant]
     Active Substance: LOSARTAN
     Indication: Hypertension
     Route: 048
     Dates: start: 2012
  5. ACYCLOVIR [Concomitant]
     Active Substance: ACYCLOVIR
     Indication: Infection
     Route: 048
     Dates: start: 202201
  6. ACYCLOVIR [Concomitant]
     Active Substance: ACYCLOVIR
     Route: 042
     Dates: start: 20221206
  7. SULFAMETHOXAZOLE [Concomitant]
     Active Substance: SULFAMETHOXAZOLE
     Indication: Infection
     Route: 048
     Dates: start: 202201
  8. SULFAMETHOXAZOLE [Concomitant]
     Active Substance: SULFAMETHOXAZOLE
     Dates: start: 20221128, end: 20221205
  9. TRIMETHOPRIM [Concomitant]
     Active Substance: TRIMETHOPRIM
     Route: 048
     Dates: start: 202201
  10. TRIMETHOPRIM [Concomitant]
     Active Substance: TRIMETHOPRIM
     Dates: start: 20221128, end: 20221205
  11. PANTOPRAZOLE [Concomitant]
     Active Substance: PANTOPRAZOLE
     Route: 048
     Dates: start: 202201
  12. TIZANIDINE [Concomitant]
     Active Substance: TIZANIDINE
     Route: 048
     Dates: start: 20220927
  13. DIPYRONE [Concomitant]
     Active Substance: DIPYRONE
     Route: 048
     Dates: start: 20220927
  14. ALLOPURINOL [Concomitant]
     Active Substance: ALLOPURINOL
     Route: 048
     Dates: start: 20221029
  15. AMOXICILLIN [Concomitant]
     Active Substance: AMOXICILLIN
     Route: 048
     Dates: start: 20221028
  16. CLAVULANATE POTASSIUM [Concomitant]
     Active Substance: CLAVULANATE POTASSIUM
     Route: 048
     Dates: start: 20221028
  17. FLUCONAZOLE [Concomitant]
     Active Substance: FLUCONAZOLE
     Indication: Oral candidiasis
     Route: 048
     Dates: start: 20221028
  18. DOMPERIDONE [Concomitant]
     Active Substance: DOMPERIDONE
     Indication: Oesophagitis
     Route: 048
     Dates: start: 20221028
  19. DEXILANT [Concomitant]
     Active Substance: DEXLANSOPRAZOLE
     Indication: Oesophagitis
     Route: 048
     Dates: start: 20221028
  20. SUCRALFATE [Concomitant]
     Active Substance: SUCRALFATE
     Indication: Gastrooesophageal reflux disease
     Route: 048
     Dates: start: 20221106
  21. SUCRALFATE [Concomitant]
     Active Substance: SUCRALFATE
     Indication: Abdominal discomfort
     Dates: start: 20221128
  22. MINERAL OIL [Concomitant]
     Active Substance: MINERAL OIL
     Indication: Constipation
     Dosage: 1 OTHER
     Route: 048
     Dates: start: 20221006
  23. SCOPOLAMINE [Concomitant]
     Active Substance: SCOPOLAMINE
     Indication: Abdominal pain
     Route: 048
     Dates: start: 20221104
  24. SCOPOLAMINE [Concomitant]
     Active Substance: SCOPOLAMINE
     Route: 048
     Dates: start: 20221104
  25. TRAMADOL [Concomitant]
     Active Substance: TRAMADOL\TRAMADOL HYDROCHLORIDE
     Indication: Abdominal pain
     Route: 048
     Dates: start: 20221102, end: 20221104
  26. GABAPENTIN [Concomitant]
     Active Substance: GABAPENTIN
     Route: 048
     Dates: start: 20220927
  27. DIMENHYDRINATE\PYRIDOXINE HYDROCHLORIDE [Concomitant]
     Active Substance: DIMENHYDRINATE\PYRIDOXINE HYDROCHLORIDE
     Indication: Nausea
     Route: 042
     Dates: start: 20221128
  28. DIMENHYDRINATE\PYRIDOXINE HYDROCHLORIDE [Concomitant]
     Active Substance: DIMENHYDRINATE\PYRIDOXINE HYDROCHLORIDE
     Indication: Vomiting
  29. FUROSEMIDE [Concomitant]
     Active Substance: FUROSEMIDE
     Indication: Oedema
     Route: 042
     Dates: start: 20221128
  30. FUROSEMIDE [Concomitant]
     Active Substance: FUROSEMIDE
     Route: 042
     Dates: start: 20221125
  31. MYLANTA PLUS [Concomitant]
     Active Substance: ALUMINUM HYDROXIDE\DIMETHICONE\MAGNESIUM HYDROXIDE
     Route: 048
     Dates: start: 20221128
  32. NORTRIPTYLINE [Concomitant]
     Active Substance: NORTRIPTYLINE
     Indication: Depression
     Route: 048
     Dates: start: 20221128
  33. SIMETHICONE (DIMETHICONE) [Concomitant]
     Active Substance: DIMETHICONE
     Indication: Flatulence
     Route: 048
     Dates: start: 20221128
  34. SUCRALFATE [Concomitant]
     Active Substance: SUCRALFATE
     Indication: Abdominal discomfort
     Dosage: NASOGASTRIC,
     Dates: start: 20221128
  35. SULFAMETHOXAZOLE\TRIMETHOPRIM [Concomitant]
     Active Substance: SULFAMETHOXAZOLE\TRIMETHOPRIM
     Indication: Infection
     Dosage: NASOGASTRIC
     Dates: start: 20221128, end: 20221205
  36. SODIUM GLYCEROPHOSPHATE [Concomitant]
     Active Substance: SODIUM GLYCEROPHOSPHATE
     Indication: Nutritional supplementation
     Route: 042
     Dates: start: 20221206, end: 20221206
  37. MEROPENEM [Concomitant]
     Active Substance: MEROPENEM
     Indication: Infection
     Route: 042
     Dates: start: 20221206, end: 20221206
  38. FILGRASTIM [Concomitant]
     Active Substance: FILGRASTIM
     Indication: Neutropenia
     Route: 058
     Dates: start: 20221104, end: 20221107
  39. PIPERACILLIN SODIUM [Concomitant]
     Active Substance: PIPERACILLIN SODIUM
     Indication: Pneumonia
     Route: 042
     Dates: start: 20221127, end: 20221128
  40. TAZOBACTAM [Concomitant]
     Active Substance: TAZOBACTAM
     Indication: Pneumonia
     Route: 042
     Dates: start: 20221127, end: 20221128
  41. MORPHINE [Concomitant]
     Active Substance: MORPHINE
     Indication: Tumour pain
     Route: 042
     Dates: start: 20221128
  42. MORPHINE [Concomitant]
     Active Substance: MORPHINE
     Indication: Abdominal pain
     Route: 048
     Dates: start: 20220920
  43. MORPHINE [Concomitant]
     Active Substance: MORPHINE
     Route: 048
     Dates: start: 20221104, end: 20221104
  44. ACETAMINOPHEN [Concomitant]
     Active Substance: ACETAMINOPHEN
     Route: 048
     Dates: start: 20221025, end: 20221118
  45. DEXAMETHASONE [Concomitant]
     Active Substance: DEXAMETHASONE
     Route: 042
     Dates: start: 20221025, end: 20221118
  46. GRANISETRON [Concomitant]
     Active Substance: GRANISETRON
     Route: 042
     Dates: start: 20221025, end: 20221118
  47. POTASSIUM PHOSPHATE [Concomitant]
     Active Substance: POTASSIUM PHOSPHATE
     Indication: Hypophosphataemia
     Route: 042
     Dates: start: 20221125, end: 20221127

REACTIONS (5)
  - Dysphagia [Recovered/Resolved]
  - Pleural effusion [Not Recovered/Not Resolved]
  - Pneumonia [Recovered/Resolved]
  - Respiratory syncytial virus infection [Not Recovered/Not Resolved]
  - Septic shock [Fatal]

NARRATIVE: CASE EVENT DATE: 20221118
